FAERS Safety Report 9365047 (Version 1)
Quarter: 2013Q2

REPORT INFORMATION
  Report Type: Spontaneous
  Country: GR (occurrence: GR)
  Receive Date: 20130624
  Receipt Date: 20130624
  Transmission Date: 20140414
  Serious: Yes (Other)
  Sender: FDA-Public Use
  Company Number: GR-PFIZER INC-2013186599

PATIENT
  Sex: Male

DRUGS (5)
  1. LIPITOR [Suspect]
     Dosage: 20 MG, UNK
     Dates: start: 20130615
  2. INSPRA [Concomitant]
     Dosage: UNK
  3. CARVEPEN [Concomitant]
     Dosage: UNK
  4. TRIATEC [Concomitant]
     Dosage: UNK
  5. DUOPLAVIN [Concomitant]
     Dosage: UNK

REACTIONS (2)
  - Speech disorder [Unknown]
  - Contusion [Unknown]
